FAERS Safety Report 17444738 (Version 1)
Quarter: 2020Q1

REPORT INFORMATION
  Report Type: Spontaneous
  Country: NL (occurrence: NL)
  Receive Date: 20200221
  Receipt Date: 20200221
  Transmission Date: 20200409
  Serious: Yes (Other)
  Sender: FDA-Public Use
  Company Number: NL-TEVA-2020-NL-1189148

PATIENT
  Sex: Male
  Weight: 55 kg

DRUGS (1)
  1. METHYLFENIDAAT [Suspect]
     Active Substance: METHYLPHENIDATE HYDROCHLORIDE
     Indication: ATTENTION DEFICIT/HYPERACTIVITY DISORDER
     Dosage: TABLET WITH REGULATED RELEASE, 10 MG (MILLIGRAMS), 2 TIMES A DAY, 1
     Dates: start: 2015, end: 20190720

REACTIONS (5)
  - Anxiety [Recovered/Resolved]
  - Obsessive-compulsive personality disorder [Recovering/Resolving]
  - Suicidal ideation [Recovering/Resolving]
  - Depressed mood [Recovered/Resolved]
  - Rebound effect [Recovered/Resolved]
